FAERS Safety Report 9677482 (Version 2)
Quarter: 2014Q1

REPORT INFORMATION
  Report Type: Report from Study
  Country: US (occurrence: US)
  Receive Date: 20131108
  Receipt Date: 20140320
  Transmission Date: 20141002
  Serious: Yes (Hospitalization, Other)
  Sender: FDA-Public Use
  Company Number: PHEH2013US022994

PATIENT
  Age: 31 Year
  Sex: Female

DRUGS (16)
  1. TOBI PODHALER [Suspect]
     Indication: CYSTIC FIBROSIS
     Dosage: 4 DF (CAPSULE), BID (28 DAYS ON THEN OFF 28 DAYS)
     Route: 055
     Dates: start: 20130910
  2. TOBI PODHALER [Suspect]
     Dosage: 4 DF (CAPSULE), BID
     Route: 055
     Dates: start: 20131001, end: 20131029
  3. AMBIEN [Concomitant]
     Dosage: 10 MG, UNK
  4. MARINOL [Concomitant]
     Dosage: 2.5 MG, UNK
  5. MIRALAX [Concomitant]
     Dosage: UNK
  6. KEPPRA [Concomitant]
     Dosage: 750 MG, UNK
  7. PREVACID [Concomitant]
     Dosage: 30 MG, UNK
  8. PULMOZYME [Concomitant]
     Dosage: 1 MG/ML, UNK
  9. BROVANA [Concomitant]
     Dosage: UNK
  10. VITAMIN D3 [Concomitant]
     Dosage: UNK
  11. CREON [Concomitant]
  12. HYPERTONIC SALINE SOLUTION [Concomitant]
     Dosage: UNK UKN, UNK
  13. DOMPERIDONE [Concomitant]
     Dosage: UNK UKN, UNK
  14. HUMALOG [Concomitant]
  15. ALBUTEROL HFA [Concomitant]
     Dosage: 90 UG, UNK
     Route: 055
  16. VITAMIN D [Concomitant]
     Dosage: 50000 U, UNK

REACTIONS (2)
  - Cystic fibrosis [Recovered/Resolved]
  - Condition aggravated [Recovered/Resolved]
